FAERS Safety Report 6717018-6 (Version None)
Quarter: 2010Q2

REPORT INFORMATION
  Report Type: 
  Country: None (occurrence: None)
  Receive Date: 20100510
  Receipt Date: 20100503
  Transmission Date: 20101027
  Serious: Yes (Other)
  Sender: FDA-Public Use
  Company Number: US-JNJFOC-20100501376

PATIENT
  Age: 10 Year
  Sex: Male
  Weight: 39.69 kg

DRUGS (7)
  1. CONCERTA [Suspect]
     Indication: ATTENTION DEFICIT/HYPERACTIVITY DISORDER
     Route: 048
  2. CONCERTA [Suspect]
     Route: 048
  3. LAMICTAL [Concomitant]
     Indication: BIPOLAR DISORDER
     Route: 048
  4. CLARITIN [Concomitant]
     Indication: MULTIPLE ALLERGIES
     Route: 048
  5. FLUDROCORTISONE [Concomitant]
     Indication: HYPOTENSION
     Route: 048
  6. FLONASE [Concomitant]
     Indication: MULTIPLE ALLERGIES
     Route: 055
  7. ALBUTEROL [Concomitant]
     Indication: MULTIPLE ALLERGIES
     Route: 055

REACTIONS (3)
  - DIZZINESS [None]
  - HYPOTENSION [None]
  - TOURETTE'S DISORDER [None]
